FAERS Safety Report 26151190 (Version 1)
Quarter: 2025Q4

REPORT INFORMATION
  Report Type: Report from Study
  Country: CA (occurrence: CA)
  Receive Date: 20251212
  Receipt Date: 20251212
  Transmission Date: 20260117
  Serious: Yes (Other)
  Sender: PFIZER
  Company Number: CA-PFIZER INC-202500241064

PATIENT
  Age: 47 Year
  Sex: Female

DRUGS (3)
  1. IXIFI [Suspect]
     Active Substance: INFLIXIMAB-QBTX
     Indication: Colitis ulcerative
     Dosage: 1300 MG, EVERY 6 WEEKS
     Route: 042
     Dates: start: 20250620
  2. IXIFI [Suspect]
     Active Substance: INFLIXIMAB-QBTX
     Dosage: 1300 MG, EVERY 6 WEEKS
     Route: 042
     Dates: start: 20251024
  3. IXIFI [Suspect]
     Active Substance: INFLIXIMAB-QBTX
     Dosage: 1300 MG, AFTER 6 WEEKS
     Route: 042
     Dates: start: 20251205

REACTIONS (2)
  - B-cell lymphoma [Not Recovered/Not Resolved]
  - Breast mass [Not Recovered/Not Resolved]

NARRATIVE: CASE EVENT DATE: 20250101
